FAERS Safety Report 6727315-6 (Version None)
Quarter: 2010Q2

REPORT INFORMATION
  Report Type: 
  Country: None (occurrence: None)
  Receive Date: 20100517
  Receipt Date: 20100511
  Transmission Date: 20101027
  Serious: Yes (Hospitalization)
  Sender: FDA-Public Use
  Company Number: TH-JNJFOC-20100402018

PATIENT
  Age: 53 Year
  Sex: Male

DRUGS (17)
  1. CRAVIT [Suspect]
     Indication: SOFT TISSUE INFECTION
     Route: 048
  2. CRAVIT [Suspect]
     Indication: SKIN INFECTION
     Route: 048
  3. CRAVIT [Suspect]
     Route: 042
  4. CRAVIT [Suspect]
     Route: 042
  5. SULPERAZONE [Suspect]
     Indication: SOFT TISSUE INFECTION
     Route: 065
  6. SULPERAZONE [Suspect]
     Indication: SKIN INFECTION
     Route: 065
  7. CLOXA [Suspect]
     Indication: SKIN INFECTION
     Route: 065
  8. CLOXA [Suspect]
     Indication: SOFT TISSUE INFECTION
     Route: 065
  9. RHINOPHEN-C [Concomitant]
     Indication: NASOPHARYNGITIS
     Dosage: 1X2 PC
     Route: 065
  10. MAXIPHED [Concomitant]
     Indication: NASOPHARYNGITIS
     Dosage: 1/2X 2 PC
     Route: 065
  11. FOLIC ACID [Concomitant]
     Indication: ANAEMIA
     Dosage: 1 IN THE EVENING
     Route: 065
  12. MECOBALAMIN [Concomitant]
     Indication: ANAEMIA
     Dosage: 1X MORNING PC
     Route: 065
  13. ALL OTHER THERAPEUTIC PRODUCT [Concomitant]
     Indication: ANAEMIA
     Dosage: 1X1
     Route: 065
  14. FORTUM [Concomitant]
     Indication: SKIN INFECTION
     Route: 065
  15. FORTUM [Concomitant]
     Indication: SOFT TISSUE INFECTION
     Route: 065
  16. BETAHISTINE MESYLATE [Concomitant]
     Indication: VERTIGO
     Dosage: 1X EVENING
     Route: 065
  17. BETAHISTINE MESYLATE [Concomitant]
     Route: 065

REACTIONS (2)
  - BLOOD SODIUM DECREASED [None]
  - CONVULSION [None]
